FAERS Safety Report 9088063 (Version 3)
Quarter: 2013Q1

REPORT INFORMATION
  Report Type: Spontaneous
  Country: CH (occurrence: CH)
  Receive Date: 20130218
  Receipt Date: 20130320
  Transmission Date: 20140127
  Serious: Yes (Other)
  Sender: FDA-Public Use
  Company Number: CH-ABBOTT-13P-151-1050545-00

PATIENT
  Age: 70 Year
  Sex: Male
  Weight: 125 kg

DRUGS (2)
  1. HUMIRA [Suspect]
     Indication: PSORIASIS
     Dates: start: 2011, end: 201302
  2. METHOTREXATE [Suspect]
     Dates: start: 200605, end: 201012

REACTIONS (1)
  - Rectal cancer [Not Recovered/Not Resolved]
